FAERS Safety Report 7398814-1 (Version None)
Quarter: 2011Q2

REPORT INFORMATION
  Report Type: 
  Country: None (occurrence: None)
  Receive Date: 20110404
  Receipt Date: 20110404
  Transmission Date: 20111010
  Serious: Yes (Hospitalization)
  Sender: FDA-Public Use
  Company Number: None

PATIENT
  Age: 71 Year
  Sex: Female
  Weight: 67.5 kg

DRUGS (1)
  1. THALIDOMIDE [Suspect]
     Indication: DEMENTIA ALZHEIMER'S TYPE
     Dosage: 350 MG QD PO
     Route: 048
     Dates: start: 20101006, end: 20110321

REACTIONS (4)
  - DIZZINESS [None]
  - MENTAL STATUS CHANGES [None]
  - IMMOBILE [None]
  - FALL [None]
